FAERS Safety Report 10540608 (Version 1)
Quarter: 2014Q4

REPORT INFORMATION
  Report Type: Spontaneous
  Country: US (occurrence: US)
  Receive Date: 20141024
  Receipt Date: 20141024
  Transmission Date: 20150529
  Serious: Yes (Other)
  Sender: FDA-Public Use
  Company Number: US-JNJFOC-20141014501

PATIENT
  Age: 58 Year
  Sex: Male
  Weight: 98.88 kg

DRUGS (13)
  1. DONEPEZIL [Concomitant]
     Active Substance: DONEPEZIL
     Route: 048
  2. MECLOZINE [Concomitant]
     Route: 048
  3. XARELTO [Suspect]
     Active Substance: RIVAROXABAN
     Indication: ATRIAL FIBRILLATION
     Route: 048
     Dates: start: 2014
  4. SIMVASTATIN. [Concomitant]
     Active Substance: SIMVASTATIN
     Route: 048
  5. XARELTO [Suspect]
     Active Substance: RIVAROXABAN
     Indication: CEREBROVASCULAR ACCIDENT PROPHYLAXIS
     Route: 048
     Dates: start: 2014
  6. BENAZEPRIL [Concomitant]
     Active Substance: BENAZEPRIL\BENAZEPRIL HYDROCHLORIDE
     Route: 065
  7. SOTALOL. [Concomitant]
     Active Substance: SOTALOL
     Route: 048
  8. BENYLIN NOS [Concomitant]
     Active Substance: DIPHENHYDRAMINE HYDROCHLORIDE
     Route: 048
  9. DIVALPROEX [Concomitant]
     Active Substance: DIVALPROEX SODIUM
     Route: 048
  10. LEVOTHYROXINE [Concomitant]
     Active Substance: LEVOTHYROXINE
     Route: 048
  11. HYDROCODONE [Concomitant]
     Active Substance: HYDROCODONE
     Indication: PAIN
     Dosage: 10-325MG EVERY 6 HOURS AS NEEDED
     Route: 048
  12. METFORMIN [Concomitant]
     Active Substance: METFORMIN HYDROCHLORIDE
     Route: 048
  13. MAGNESIUM OXIDE. [Concomitant]
     Active Substance: MAGNESIUM OXIDE
     Route: 048

REACTIONS (4)
  - Abnormal loss of weight [Not Recovered/Not Resolved]
  - Bladder disorder [Not Recovered/Not Resolved]
  - Drug dose omission [Not Recovered/Not Resolved]
  - Blood urine present [Unknown]

NARRATIVE: CASE EVENT DATE: 2014
